FAERS Safety Report 6107593-7 (Version None)
Quarter: 2009Q1

REPORT INFORMATION
  Report Type: 
  Country: None (occurrence: None)
  Receive Date: 20090309
  Receipt Date: 20090305
  Transmission Date: 20090719
  Serious: Yes (Other)
  Sender: FDA-Public Use
  Company Number: US-BRISTOL-MYERS SQUIBB COMPANY-14521280

PATIENT
  Age: 69 Year
  Sex: Male
  Weight: 80 kg

DRUGS (9)
  1. SUSTIVA [Suspect]
     Indication: HIV INFECTION
     Route: 048
     Dates: start: 20071203
  2. LISINOPRIL [Concomitant]
  3. CARVEDILOL [Concomitant]
  4. FLOMAX [Concomitant]
  5. ASPIRIN [Concomitant]
  6. PROVENTIL [Concomitant]
  7. NORCO [Concomitant]
  8. VALIUM [Concomitant]
  9. EPZICOM [Concomitant]

REACTIONS (4)
  - ANXIETY [None]
  - CARDIAC FAILURE CONGESTIVE [None]
  - GASTROOESOPHAGEAL REFLUX DISEASE [None]
  - HYPERTENSION [None]
